FAERS Safety Report 6858960-5 (Version None)
Quarter: 2010Q3

REPORT INFORMATION
  Report Type: 
  Country: None (occurrence: None)
  Receive Date: 20100719
  Receipt Date: 20080217
  Transmission Date: 20110219
  Serious: Yes (Other)
  Sender: FDA-Public Use
  Company Number: US-PFIZER INC-2008016481

PATIENT
  Age: 22 Year
  Sex: Female

DRUGS (1)
  1. CHANTIX [Suspect]
     Dates: end: 20080216

REACTIONS (1)
  - HYPERTENSION [None]
